FAERS Safety Report 17916484 (Version 1)
Quarter: 2020Q2

REPORT INFORMATION
  Report Type: Spontaneous
  Country: FR (occurrence: FR)
  Receive Date: 20200619
  Receipt Date: 20200619
  Transmission Date: 20200714
  Serious: Yes (Other)
  Sender: FDA-Public Use
  Company Number: FR-ROCHE-2625670

PATIENT
  Age: 25 Year
  Sex: Male

DRUGS (3)
  1. VALIUM [Suspect]
     Active Substance: DIAZEPAM
     Indication: SPINAL MUSCULAR ATROPHY
     Route: 048
     Dates: start: 2002
  2. DAFALGAN CODEINE [Suspect]
     Active Substance: ACETAMINOPHEN\CODEINE PHOSPHATE
     Indication: PAIN
     Route: 048
     Dates: start: 201910
  3. XANAX [Suspect]
     Active Substance: ALPRAZOLAM
     Indication: SPINAL MUSCULAR ATROPHY
     Route: 048

REACTIONS (1)
  - Drug use disorder [Not Recovered/Not Resolved]
